FAERS Safety Report 7794780-5 (Version None)
Quarter: 2011Q4

REPORT INFORMATION
  Report Type: 
  Country: None (occurrence: None)
  Receive Date: 20111004
  Receipt Date: 20110927
  Transmission Date: 20120403
  Serious: No
  Sender: FDA-Public Use
  Company Number: US-PFIZER INC-2011209542

PATIENT
  Sex: Male

DRUGS (37)
  1. VIAGRA [Suspect]
     Indication: ERECTILE DYSFUNCTION
     Dosage: 100 MG, QD PRN
     Route: 048
  2. COLCHICINE [Concomitant]
     Indication: GOUT
     Dosage: UNK, AS NEEDED
  3. HYDROMORPHONE HYDROCHLORIDE [Concomitant]
     Indication: PAIN
     Dosage: 2 MG, AS NEEDED (TAKE 1 TABLET BY MOUTH EVERY 6 HOURS AS NEEDED)
     Route: 048
  4. LYRICA [Concomitant]
     Dosage: 100 MG, 2X/DAY (1  CAPSULE BY MOUTH  TWICE DAILY)
     Route: 048
  5. METOPROLOL TARTRATE [Concomitant]
     Dosage: 25 MG, 2X/DAY
     Route: 048
  6. OMEPRAZOLE [Concomitant]
     Dosage: 20 MG, 2X/DAY  (TAKE ONE CAPSULE BY MOUTH TWICE DAILY FOR 10 DAYS)
     Route: 048
  7. PANTOPRAZOLE [Concomitant]
     Dosage: 40 MG, 2X/DAY (TAKE 1 TABLET BY MOUTH TWICE DAILY)
     Route: 048
  8. GLYBURIDE [Concomitant]
     Dosage: 1.25 MG, 2X/DAY
     Route: 048
  9. INDOMETHACIN [Concomitant]
     Indication: GOUT
     Dosage: 25 MG, 3X/DAY (TAKE 1 CAPSULE BY MOUTH THREE TIMES DAILY FOR 10 DAYS)
     Route: 048
  10. INDOMETHACIN [Concomitant]
     Dosage: 25 MG, 3X/DAY (TAKE 1 CAPSULE BY MOUTH THREE TIMES DAILY FOR 2 WEEKS)
     Route: 048
  11. OXYCODONE [Concomitant]
     Dosage: 20 MG, TAKE 1 ER TABLET BY MOUTH EVERY 12 HOURS AS NEEDED
     Route: 048
  12. OXYCONTIN [Concomitant]
     Dosage: 30 MG, 3X/DAY (TAKE 1 TABLET BY MOUTH THREE TIMES DAILY)
     Route: 048
  13. TESTOSTERONE [Concomitant]
     Dosage: 200 MG/ML, INJECT 1 ML INTRAMUSCULARLY EVERY 3 WEEKS
     Route: 030
  14. AMITRIPTYLINE [Concomitant]
     Dosage: 25 MG, 1X/DAY
     Route: 048
  15. OXYCODONE [Concomitant]
     Indication: PAIN
     Dosage: 15 MG, TAKE 1 IMM REL TABLET BY MOUTH EVERY 6 HOURS AS NEEDED
     Route: 048
  16. OXYCONTIN [Concomitant]
     Dosage: 30 MG, 2X/DAY (TAKE 1 TABLET BY MOUTH TWICE DAILY)
     Route: 048
  17. FEBUXOSTAT [Concomitant]
     Dosage: 40 MG, 1X/DAY (TAKE 1 TABLET BY MOUTH DAILY)
     Route: 048
  18. ALLOPURINOL [Concomitant]
     Dosage: 100 MG, 1X/DAY (TAKE 1 TABLET BY MOUTH AT NIGHT)
     Route: 048
  19. FLUTICASONE [Concomitant]
     Dosage: 16 G, PLACE 1 TO 2 SPRAYS INTO EACH NOSTRIL EVERY DAY FOR SINUS. MAX OF 2 SPRAYS NOSTRIL/DAY
  20. HALFLYTELY [Concomitant]
     Dosage: TAKE AS DIRECTED PER PACKAGE INSTRUCTIONS
  21. LISINOPRIL [Concomitant]
     Dosage: 40 MG, 2X/DAY (TAKE 1 TABLET BY MOUTH TWICE DAILY)
     Route: 048
  22. OMEPRAZOLE [Concomitant]
     Dosage: 20 MG, 1X/DAY (TAKE ONE CAPSULE BY MOUTH ONCE DAILY )
     Route: 048
  23. OXYCONTIN [Concomitant]
     Dosage: 20 MG, TAKE 1 TABLET BY MOUTH EVERY 12 HOURS AS NEEDED
     Route: 048
  24. GLYBURIDE [Concomitant]
     Indication: DIABETES MELLITUS
     Dosage: 1.25 MG, DAILY
  25. PANTOPRAZOLE [Concomitant]
     Dosage: 40 MG, 1X/DAY (TAKE 1 TABLET BY MOUTH EVERY DAY)
  26. OXYCODONE HCL AND ACETAMINOPHEN [Concomitant]
     Indication: PAIN
     Dosage: 10MG/325MG TABLETS TAKE 1 TABLET BY MOUTH THREE TIMES DAILY AS NEEDED
     Route: 048
  27. ALLOPURINOL [Concomitant]
     Indication: GOUT
     Dosage: 300 MG, DAILY
  28. GLYBURIDE [Concomitant]
     Dosage: 1.25MG TABLETS TAKE 1/2 TABLET MOUTH TWICE DAILY
     Route: 048
  29. AMOXICILLIN AND CLAVULANATE POTASSIUM [Concomitant]
     Dosage: 875 MG, 2X/DAY (TAKE 1 BY MOUTH TWICE DAILY FOR 10 DAYS)
     Route: 048
  30. LYRICA [Concomitant]
     Dosage: 100 MG, 1X/DAY (TAKE 1 CAPSULE BY  MOUTH AT NIGHT FOR  3 DAYS)
     Route: 048
  31. OMEPRAZOLE [Concomitant]
     Indication: GASTROOESOPHAGEAL REFLUX DISEASE
     Dosage: 20 MG, 1X/DAY (TAKE ONE CAPSULE BY MOUTH DAILY PRIOR TO A MEAL)
     Route: 048
  32. PANTOPRAZOLE [Concomitant]
     Dosage: 40 MG, TAKE 1 TABLET BY MOUTH 30 TO 60 MINUTES BEFORE EATING A MEAL FOR 30 DAYS
     Route: 048
  33. TESTOSTERONE [Concomitant]
     Dosage: 200 MG/ML, INJECT 1 ML IN THE MUSCLE EVERY 2 WEEKS
     Route: 030
  34. COLCHICINE [Concomitant]
     Dosage: 0.6 MG, 2X/DAY
     Route: 048
  35. COLCHICINE [Concomitant]
     Dosage: 0.6 MG,  AT ONSET, THEN 1 EVERY 1 HOURS OR 2 TABLETS EVERY 2 HOURS UNTIL NO SYMPTOMS OF GOUT
     Route: 048
  36. COLESTYRAMINE [Concomitant]
     Dosage: 4 G, 1X/DAY, (USE 1 PACK WITH 2 OZ OF WATER EVERY DAY)
  37. LISINOPRIL [Concomitant]
     Dosage: 40 MG, 1X/DAY (TAKE 1 TABLET BY MOUTH EVERY DAY)
     Route: 048

REACTIONS (1)
  - DRUG INEFFECTIVE [None]
